FAERS Safety Report 7222635-3 (Version None)
Quarter: 2011Q1

REPORT INFORMATION
  Report Type: 
  Country: None (occurrence: None)
  Receive Date: 20110106
  Receipt Date: 20110106
  Transmission Date: 20110831
  Serious: Yes (Other)
  Sender: FDA-Public Use
  Company Number: None

PATIENT
  Age: 51 Year
  Sex: Female
  Weight: 60.782 kg

DRUGS (1)
  1. CHANTIX [Suspect]
     Indication: SMOKING CESSATION THERAPY
     Dosage: 1MG TWICE DAILY PO
     Route: 048
     Dates: start: 20100716, end: 20100921

REACTIONS (13)
  - VERTIGO [None]
  - INSOMNIA [None]
  - COGNITIVE DISORDER [None]
  - CONSTIPATION [None]
  - DRUG INEFFECTIVE [None]
  - HEART RATE INCREASED [None]
  - TREMOR [None]
  - MUSCULAR WEAKNESS [None]
  - THYROIDITIS [None]
  - ANGER [None]
  - PANIC ATTACK [None]
  - OEDEMA [None]
  - WEIGHT INCREASED [None]
